FAERS Safety Report 7079999-3 (Version None)
Quarter: 2010Q4

REPORT INFORMATION
  Report Type: 
  Country: None (occurrence: None)
  Receive Date: 20101102
  Receipt Date: 20100310
  Transmission Date: 20110411
  Serious: Yes (Life-Threatening)
  Sender: FDA-Public Use
  Company Number: US-ABBOTT-10P-163-0629938-00

PATIENT
  Age: 60 Year
  Sex: Female

DRUGS (6)
  1. BIAXIN [Suspect]
     Indication: SINUSITIS
     Dates: start: 20100201
  2. SPIRIVA [Suspect]
     Indication: CHRONIC OBSTRUCTIVE PULMONARY DISEASE
     Route: 055
     Dates: start: 20090429
  3. SPIRIVA [Suspect]
     Indication: EMPHYSEMA
  4. ZOLOFT [Concomitant]
     Indication: ANXIETY
     Route: 048
  5. XOPENEX [Concomitant]
     Indication: CHRONIC OBSTRUCTIVE PULMONARY DISEASE
  6. ASPIRIN [Concomitant]
     Indication: PROPHYLAXIS

REACTIONS (5)
  - ANAPHYLACTIC REACTION [None]
  - BRONCHITIS [None]
  - CHEST DISCOMFORT [None]
  - SINUSITIS [None]
  - UPPER RESPIRATORY TRACT INFECTION [None]
